FAERS Safety Report 4788115-X (Version None)
Quarter: 2005Q3

REPORT INFORMATION
  Report Type: 
  Country: None (occurrence: None)
  Receive Date: 20050920
  Receipt Date: 20040924
  Transmission Date: 20060218
  Serious: Yes (Hospitalization)
  Sender: FDA-Public Use
  Company Number: PHEH2004US09850

PATIENT
  Age: 57 Year
  Sex: Female

DRUGS (5)
  1. FEMARA [Suspect]
     Indication: BREAST CANCER
     Dosage: 2.5 MG, QD
     Dates: start: 20040501, end: 20040901
  2. NEURONTIN [Concomitant]
  3. LEXAPRO [Concomitant]
  4. LOTREL [Concomitant]
  5. AMITRIPTYLINE HCL [Concomitant]

REACTIONS (9)
  - AMNESIA [None]
  - BACK PAIN [None]
  - CHEST PAIN [None]
  - CYSTITIS [None]
  - FATIGUE [None]
  - HEADACHE [None]
  - HOT FLUSH [None]
  - SHOULDER PAIN [None]
  - URINARY TRACT INFECTION [None]
